FAERS Safety Report 5777392-4 (Version None)
Quarter: 2008Q2

REPORT INFORMATION
  Report Type: 
  Country: None (occurrence: None)
  Receive Date: 20080616
  Receipt Date: 20080603
  Transmission Date: 20081010
  Serious: Yes (Hospitalization)
  Sender: FDA-Public Use
  Company Number: 2008AL006286

PATIENT
  Age: 85 Year
  Sex: Female
  Weight: 68.9467 kg

DRUGS (9)
  1. DIGOXIN [Suspect]
     Indication: ARRHYTHMIA
     Dosage: .125MG DAILY PO
     Route: 048
     Dates: start: 20060101, end: 20080512
  2. LANOXIN [Concomitant]
  3. LASIX [Concomitant]
  4. TOPROL-XL [Concomitant]
  5. VYTORIN [Concomitant]
  6. COUMADIN [Concomitant]
  7. MIRAPEX [Concomitant]
  8. LEVOTHYROXINE SODIUM [Concomitant]
  9. SPIRONOLACTONE [Concomitant]

REACTIONS (6)
  - BACK PAIN [None]
  - FALL [None]
  - HEAD INJURY [None]
  - HYPOTENSION [None]
  - LOSS OF CONSCIOUSNESS [None]
  - SPINAL FRACTURE [None]
